FAERS Safety Report 4691344-7 (Version None)
Quarter: 2005Q2

REPORT INFORMATION
  Report Type: 
  Country: None (occurrence: None)
  Receive Date: 20050610
  Receipt Date: 20050601
  Transmission Date: 20051028
  Serious: Yes (Other)
  Sender: FDA-Public Use
  Company Number: 2005078588

PATIENT
  Sex: Female
  Weight: 51.7101 kg

DRUGS (6)
  1. DILANTIN KAPSEAL [Suspect]
     Indication: CONVULSION
     Dosage: 330 MG (2 IN 1 D), ORAL
     Route: 048
  2. CITRACAL (CALCIUM CITRATE) [Suspect]
     Indication: MINERAL SUPPLEMENTATION
  3. MULTIVITAMIN [Suspect]
     Indication: ILL-DEFINED DISORDER
     Dosage: ORAL
     Route: 048
  4. MYSOLINE ^ASTRA^ (PRIMIDONE) [Concomitant]
  5. VITAMIN B6 (VITAMIN B6) [Concomitant]
  6. GLUCOSAMINE W/CHONDROITIN SULFATES (ASCORBIC ACID, CHONDROITIN SULFATE [Concomitant]

REACTIONS (6)
  - ARTHRITIS [None]
  - CONVULSION [None]
  - DRUG INEFFECTIVE [None]
  - DRUG INTERACTION [None]
  - NERVOUS SYSTEM DISORDER [None]
  - PHARMACEUTICAL PRODUCT COMPLAINT [None]
